FAERS Safety Report 6147917-8 (Version None)
Quarter: 2009Q2

REPORT INFORMATION
  Report Type: 
  Country: None (occurrence: None)
  Receive Date: 20090408
  Receipt Date: 20090401
  Transmission Date: 20091009
  Serious: Yes (Hospitalization)
  Sender: FDA-Public Use
  Company Number: US-NOVOPROD-285843

PATIENT
  Sex: Male

DRUGS (8)
  1. NOVOLOG MIX 70/30 [Suspect]
     Indication: INSULIN-REQUIRING TYPE 2 DIABETES MELLITUS
     Dosage: 200 IU, QD
     Route: 058
  2. TENORETIC 100 [Concomitant]
     Indication: BLOOD PRESSURE INCREASED
     Dosage: UNKNOWN
  3. LANOXIN [Concomitant]
     Indication: CARDIAC DISORDER
     Dosage: UNKNOWN
  4. TRICOR [Concomitant]
     Indication: BLOOD CHOLESTEROL INCREASED
     Dosage: 145 MG, QD
  5. ADVAIR HFA [Concomitant]
     Dosage: 500 UNK, QD
  6. ALBUTEROL [Concomitant]
     Indication: CHRONIC OBSTRUCTIVE PULMONARY DISEASE
     Dosage: UNKNOWN
     Route: 055
  7. AZOPT [Concomitant]
     Indication: GLAUCOMA
     Dosage: 2 GTT, QD
  8. ALPHAGAN                           /01341101/ [Concomitant]
     Dosage: UNKNOWN

REACTIONS (1)
  - CARDIAC FAILURE CONGESTIVE [None]
